FAERS Safety Report 18468414 (Version 1)
Quarter: 2020Q4

REPORT INFORMATION
  Report Type: Report from Study
  Country: CO (occurrence: CO)
  Receive Date: 20201105
  Receipt Date: 20201105
  Transmission Date: 20210114
  Serious: Yes (Death, Life-Threatening, Hospitalization, Other)
  Sender: FDA-Public Use
  Company Number: NVSC2020CO289107

PATIENT
  Sex: Female
  Weight: 41 kg

DRUGS (3)
  1. OLANZAPINE. [Suspect]
     Active Substance: OLANZAPINE
     Indication: PRODUCT USED FOR UNKNOWN INDICATION
     Dosage: 5 MG, QD
     Route: 048
  2. ACYCLOVIR. [Concomitant]
     Active Substance: ACYCLOVIR
     Indication: PRODUCT USED FOR UNKNOWN INDICATION
     Dosage: 200 MG, QD
     Route: 048
  3. RYDAPT [Suspect]
     Active Substance: MIDOSTAURIN
     Indication: ACUTE MYELOID LEUKAEMIA
     Dosage: 25 MG, Q12H (2 TABLETS)
     Route: 048
     Dates: start: 20200627

REACTIONS (8)
  - Dizziness [Unknown]
  - Weight decreased [Unknown]
  - Acute myeloid leukaemia [Fatal]
  - Vomiting [Unknown]
  - Cerebrovascular accident [Fatal]
  - Petechiae [Unknown]
  - Malignant neoplasm progression [Fatal]
  - Platelet count decreased [Unknown]
